FAERS Safety Report 25687388 (Version 3)
Quarter: 2025Q3

REPORT INFORMATION
  Report Type: Spontaneous
  Country: TH (occurrence: TH)
  Receive Date: 20250816
  Receipt Date: 20250828
  Transmission Date: 20251020
  Serious: Yes (Hospitalization)
  Sender: MERCK SHARP & DOHME LLC
  Company Number: TH-009507513-2318722

PATIENT
  Age: 68 Year
  Sex: Male

DRUGS (4)
  1. KEYTRUDA [Suspect]
     Active Substance: PEMBROLIZUMAB
     Indication: Biliary neoplasm
     Route: 042
     Dates: start: 20250411
  2. KEYTRUDA [Suspect]
     Active Substance: PEMBROLIZUMAB
     Indication: Biliary neoplasm
     Route: 042
     Dates: start: 20250521
  3. KEYTRUDA [Suspect]
     Active Substance: PEMBROLIZUMAB
     Indication: Biliary neoplasm
     Route: 042
     Dates: start: 20250617
  4. KEYTRUDA [Suspect]
     Active Substance: PEMBROLIZUMAB
     Indication: Biliary neoplasm
     Route: 042
     Dates: start: 20250709

REACTIONS (9)
  - Liver abscess [Recovered/Resolved]
  - Bile duct stone [Recovering/Resolving]
  - Inappropriate schedule of product administration [Unknown]
  - Inappropriate schedule of product administration [Unknown]
  - Inappropriate schedule of product administration [Unknown]
  - Abdominal abscess [Unknown]
  - Liver abscess [Unknown]
  - Hypotension [Unknown]
  - Renal impairment [Unknown]

NARRATIVE: CASE EVENT DATE: 20250101
